FAERS Safety Report 5946962-2 (Version None)
Quarter: 2008Q4

REPORT INFORMATION
  Report Type: 
  Country: None (occurrence: None)
  Receive Date: 20081110
  Receipt Date: 20081105
  Transmission Date: 20090506
  Serious: Yes (Other)
  Sender: FDA-Public Use
  Company Number: JP-BRACCO-001374

PATIENT
  Age: 77 Year
  Sex: Female
  Weight: 42 kg

DRUGS (4)
  1. IOPAMIDOL [Suspect]
     Indication: PERCUTANEOUS CORONARY INTERVENTION
     Route: 013
     Dates: start: 20051021, end: 20051021
  2. IOPAMIDOL [Suspect]
     Route: 013
     Dates: start: 20051007, end: 20051007
  3. LIDOCAINE                          /00033401/ [Concomitant]
     Route: 065
  4. SOLUTIONS PRODUCING OSMOTIC DIURESIS [Concomitant]
     Indication: POLYURIA
     Route: 065
     Dates: start: 20081021, end: 20081021

REACTIONS (2)
  - CLONIC CONVULSION [None]
  - EXTRAVASATION [None]
